FAERS Safety Report 4583519-2 (Version None)
Quarter: 2005Q1

REPORT INFORMATION
  Report Type: 
  Country: None (occurrence: None)
  Receive Date: 20050211
  Receipt Date: 20050131
  Transmission Date: 20050727
  Serious: Yes (Hospitalization)
  Sender: FDA-Public Use
  Company Number: 2005CG00238

PATIENT
  Age: 63 Year
  Sex: Female

DRUGS (7)
  1. OMEPRAZOLE [Suspect]
     Dosage: 20 MG QD PO
     Route: 048
     Dates: start: 20031001, end: 20031210
  2. OXEOL [Suspect]
     Dosage: 1 DF QD PO
     Route: 048
     Dates: start: 20031130, end: 20031202
  3. DI-HYDAN [Suspect]
     Indication: STATUS EPILEPTICUS
     Dosage: 100 MG TID PO
     Route: 048
     Dates: start: 20031101, end: 20031208
  4. FORADIL [Suspect]
     Dates: start: 20030401, end: 20031210
  5. LOVENOX [Suspect]
     Dosage: 4000 U QD SQ
     Route: 058
     Dates: start: 20031101, end: 20031210
  6. MIFLASONE [Suspect]
     Dates: start: 20030401, end: 20031210
  7. DEPAKENE [Concomitant]

REACTIONS (4)
  - CENTRAL-ALVEOLAR HYPOVENTILATION [None]
  - DRUG RASH WITH EOSINOPHILIA AND SYSTEMIC SYMPTOMS [None]
  - STATUS EPILEPTICUS [None]
  - TRANSAMINASES INCREASED [None]
